FAERS Safety Report 5175209-2 (Version None)
Quarter: 2006Q4

REPORT INFORMATION
  Report Type: 
  Country: None (occurrence: None)
  Receive Date: 20061206
  Receipt Date: 20061122
  Transmission Date: 20070319
  Serious: Yes (Other)
  Sender: FDA-Public Use
  Company Number: US018911

PATIENT
  Age: 62 Year
  Sex: Female

DRUGS (4)
  1. TRISENOX [Suspect]
     Indication: ACUTE PROMYELOCYTIC LEUKAEMIA
     Dosage: 8.19 MG QD INTRAVENOUS DRIP
     Route: 041
     Dates: start: 20060126, end: 20060326
  2. DANAPAROID SODIUM [Suspect]
     Dosage: 1250 MG QD INTRAVENOUS DRIP
     Route: 041
     Dates: start: 20060126, end: 20060208
  3. IDARUBICIN HCL [Concomitant]
  4. CYTARABINE [Concomitant]

REACTIONS (1)
  - GAMMA-GLUTAMYLTRANSFERASE INCREASED [None]
